FAERS Safety Report 12729240 (Version 2)
Quarter: 2016Q4

REPORT INFORMATION
  Report Type: Report from Study
  Country: AU (occurrence: AU)
  Receive Date: 20160909
  Receipt Date: 20161028
  Transmission Date: 20170207
  Serious: Yes (Other)
  Sender: FDA-Public Use
  Company Number: AU-JNJFOC-20160901728

PATIENT
  Sex: Female
  Weight: 100 kg

DRUGS (2)
  1. REMICADE [Suspect]
     Active Substance: INFLIXIMAB
     Indication: CROHN^S DISEASE
     Dosage: 24 WEEKS CYCLE
     Route: 042
  2. REMICADE [Suspect]
     Active Substance: INFLIXIMAB
     Indication: CROHN^S DISEASE
     Dosage: QUANTITY: 5, DOSAGE SCHEDULED NUMBER: 6 ??DOSAGE SCHEDULED FREQUENCY: WEEKLY
     Route: 042

REACTIONS (4)
  - Drug level decreased [Unknown]
  - Off label use [Unknown]
  - Small intestinal stenosis [Unknown]
  - Product use issue [Unknown]
